FAERS Safety Report 19768393 (Version 2)
Quarter: 2021Q3

REPORT INFORMATION
  Report Type: Spontaneous
  Country: US (occurrence: US)
  Receive Date: 20210831
  Receipt Date: 20210916
  Transmission Date: 20211014
  Serious: Yes (Hospitalization)
  Sender: FDA-Public Use
  Company Number: US-GW PHARMA-202108USGW03998

PATIENT

DRUGS (1)
  1. EPIDIOLEX [Suspect]
     Active Substance: CANNABIDIOL
     Indication: EPILEPSY
     Dosage: 75 MILLIGRAM, BID, (FIRST SHIPPED ON 29?JUL?2021)
     Route: 048
     Dates: start: 2021

REACTIONS (3)
  - Cardiac arrest [Unknown]
  - Supraventricular tachycardia [Unknown]
  - Seizure [Unknown]

NARRATIVE: CASE EVENT DATE: 20210606
